FAERS Safety Report 4999279-7 (Version None)
Quarter: 2006Q2

REPORT INFORMATION
  Report Type: 
  Country: None (occurrence: None)
  Receive Date: 20060509
  Receipt Date: 20060426
  Transmission Date: 20061013
  Serious: Yes (Hospitalization, Other)
  Sender: FDA-Public Use
  Company Number: US200604004500

PATIENT
  Age: 91 Year
  Sex: Female

DRUGS (1)
  1. CYMBALTA [Suspect]
     Dosage: 60 MG, EACH EVENING
     Dates: start: 20050901

REACTIONS (2)
  - MUSCULAR WEAKNESS [None]
  - PAIN [None]
